FAERS Safety Report 25279842 (Version 2)
Quarter: 2025Q2

REPORT INFORMATION
  Report Type: Spontaneous
  Country: JP (occurrence: JP)
  Receive Date: 20250507
  Receipt Date: 20250527
  Transmission Date: 20250716
  Serious: Yes (Other)
  Sender: BRISTOL-MYERS SQUIBB COMPANY
  Company Number: JP-BRISTOL-MYERS SQUIBB COMPANY-2025-064733

PATIENT
  Age: 67 Year
  Sex: Male

DRUGS (6)
  1. VIDAZA [Suspect]
     Active Substance: AZACITIDINE
     Indication: Acute myeloid leukaemia
     Route: 042
  2. VENCLEXTA [Concomitant]
     Active Substance: VENETOCLAX
     Indication: Acute myeloid leukaemia
  3. DAUNORUBICIN HYDROCHLORIDE [Concomitant]
     Active Substance: DAUNORUBICIN HYDROCHLORIDE
     Indication: Acute myeloid leukaemia
  4. CYTARABINE [Concomitant]
     Active Substance: CYTARABINE
     Indication: Acute myeloid leukaemia
     Route: 042
  5. CYTARABINE [Concomitant]
     Active Substance: CYTARABINE
     Indication: Pericardial effusion
  6. CYTARABINE [Concomitant]
     Active Substance: CYTARABINE
     Indication: Leukaemic infiltration

REACTIONS (2)
  - Haematoma muscle [Unknown]
  - Cholangitis [Unknown]
